FAERS Safety Report 11665490 (Version 1)
Quarter: 2015Q4

REPORT INFORMATION
  Report Type: Spontaneous
  Country: US (occurrence: US)
  Receive Date: 20151027
  Receipt Date: 20151027
  Transmission Date: 20160304
  Serious: No
  Sender: FDA-Public Use
  Company Number: US-ELI_LILLY_AND_COMPANY-US200912005776

PATIENT
  Sex: Female

DRUGS (3)
  1. FORTEO [Suspect]
     Active Substance: TERIPARATIDE
     Indication: OSTEOPOROSIS
     Dosage: 1 D/F, DAILY (1/D)
     Dates: start: 200909, end: 20090917
  2. FORTEO [Suspect]
     Active Substance: TERIPARATIDE
     Dosage: 1 D/F, DAILY (1/D)
     Dates: start: 20091217, end: 20091224
  3. FORTEO [Suspect]
     Active Substance: TERIPARATIDE
     Dosage: 1 D/F, DAILY (1/D)
     Dates: start: 20091227

REACTIONS (2)
  - Drug dose omission [Recovered/Resolved]
  - Injection site haemorrhage [Unknown]

NARRATIVE: CASE EVENT DATE: 2009
